FAERS Safety Report 23426794 (Version 2)
Quarter: 2024Q2

REPORT INFORMATION
  Report Type: Spontaneous
  Country: US (occurrence: US)
  Receive Date: 20240122
  Receipt Date: 20240425
  Transmission Date: 20240716
  Serious: No
  Sender: FDA-Public Use
  Company Number: US-BRISTOL-MYERS SQUIBB COMPANY-2024-010675

PATIENT
  Age: 69 Year
  Sex: Male

DRUGS (1)
  1. LENALIDOMIDE [Suspect]
     Active Substance: LENALIDOMIDE
     Indication: Plasmacytoma
     Dosage: TAKE 1 CAPSULE BY MOUTH WHOLE W/ OR W/O FOOD DAILY FOR  21 DAYS, FOLLOWED BY 7 DAYS OFF. DO NOT BREA
     Route: 048

REACTIONS (4)
  - Influenza [Not Recovered/Not Resolved]
  - Off label use [Unknown]
  - Product supply issue [Unknown]
  - Therapy interrupted [Unknown]
